FAERS Safety Report 20209388 (Version 2)
Quarter: 2022Q1

REPORT INFORMATION
  Report Type: Report from Study
  Country: IT (occurrence: IT)
  Receive Date: 20211220
  Receipt Date: 20220220
  Transmission Date: 20220423
  Serious: Yes (Other)
  Sender: FDA-Public Use
  Company Number: None

PATIENT
  Age: 78 Year
  Sex: Male

DRUGS (4)
  1. DARATUMUMAB [Suspect]
     Active Substance: DARATUMUMAB
     Indication: Product used for unknown indication
     Route: 065
     Dates: end: 20211025
  2. BISOPROLOL [Concomitant]
     Active Substance: BISOPROLOL
  3. ASPIRIN [Concomitant]
     Active Substance: ASPIRIN
  4. BORTEZOMIB [Concomitant]
     Active Substance: BORTEZOMIB

REACTIONS (3)
  - Hypertensive crisis [Not Recovered/Not Resolved]
  - Chills [Not Recovered/Not Resolved]
  - Infusion related reaction [Unknown]

NARRATIVE: CASE EVENT DATE: 20211025
